FAERS Safety Report 5299731-3 (Version None)
Quarter: 2007Q2

REPORT INFORMATION
  Report Type: 
  Country: None (occurrence: None)
  Receive Date: 20070410
  Receipt Date: 20070329
  Transmission Date: 20071010
  Serious: Yes (Death, Other)
  Sender: FDA-Public Use
  Company Number: 430001L07FRA

PATIENT
  Age: 64 Year
  Sex: Male

DRUGS (4)
  1. NOVANTRONE [Suspect]
     Indication: PROSTATE CANCER
     Dosage: 12 MG/M2, 1 IN 21 DAYS, INTRAVENOUS (NOT OTHERWISE SPECIFIED)
     Route: 042
  2. DOCETAXEL [Concomitant]
  3. IROFULVEN [Concomitant]
  4. CAPECITABINE [Concomitant]

REACTIONS (4)
  - ACUTE MYELOID LEUKAEMIA [None]
  - DYSPNOEA [None]
  - MALIGNANT NEOPLASM PROGRESSION [None]
  - PROSTATE CANCER [None]
